FAERS Safety Report 13038194 (Version 1)
Quarter: 2016Q4

REPORT INFORMATION
  Report Type: Spontaneous
  Country: US (occurrence: US)
  Receive Date: 20161218
  Receipt Date: 20161218
  Transmission Date: 20170207
  Serious: No
  Sender: FDA-Public Use
  Company Number: US-009507513-1612USA001368

PATIENT
  Age: 35 Year
  Sex: Male
  Weight: 90.7 kg

DRUGS (1)
  1. ZEPATIER [Suspect]
     Active Substance: ELBASVIR\GRAZOPREVIR
     Indication: HEPATITIS C
     Dosage: 1 PILL PER DAY AT NIGHT
     Route: 048
     Dates: start: 20161127, end: 2016

REACTIONS (4)
  - Fatigue [Unknown]
  - Insomnia [Unknown]
  - Abnormal behaviour [Unknown]
  - Product use issue [Unknown]

NARRATIVE: CASE EVENT DATE: 2016
